FAERS Safety Report 10081163 (Version 2)
Quarter: 2014Q2

REPORT INFORMATION
  Report Type: Report from Study
  Country: TH (occurrence: TH)
  Receive Date: 20140416
  Receipt Date: 20140425
  Transmission Date: 20141212
  Serious: Yes (Death, Other)
  Sender: FDA-Public Use
  Company Number: PHHY2014TH046496

PATIENT
  Sex: Male

DRUGS (1)
  1. GLIVEC [Suspect]
     Indication: GASTROINTESTINAL STROMAL TUMOUR
     Dosage: 400 MG

REACTIONS (3)
  - Hypoglycaemia [Fatal]
  - Acidosis [Fatal]
  - Sepsis [Unknown]
